FAERS Safety Report 14457407 (Version 2)
Quarter: 2018Q1

REPORT INFORMATION
  Report Type: Spontaneous
  Country: US (occurrence: US)
  Receive Date: 20180130
  Receipt Date: 20180328
  Transmission Date: 20180509
  Serious: No
  Sender: FDA-Public Use
  Company Number: US-PFIZER INC-2018038764

PATIENT
  Age: 18 Year
  Sex: Male

DRUGS (1)
  1. KERYDIN [Suspect]
     Active Substance: TAVABOROLE
     Dosage: UNK, 1X/DAY
     Dates: start: 20170801

REACTIONS (2)
  - Drug dose omission [Unknown]
  - Onychomycosis [Unknown]
